FAERS Safety Report 20690517 (Version 3)
Quarter: 2022Q2

REPORT INFORMATION
  Report Type: Spontaneous
  Country: CN (occurrence: US)
  Receive Date: 20220408
  Receipt Date: 20220509
  Transmission Date: 20220721
  Serious: Yes (Death, Hospitalization, Other)
  Sender: FDA-Public Use
  Company Number: CN-009507513-2204CHN000385

PATIENT
  Age: 67 Year
  Sex: Male
  Weight: 81.6 kg

DRUGS (2)
  1. KEYTRUDA [Suspect]
     Active Substance: PEMBROLIZUMAB
     Indication: Mesothelioma malignant
     Dosage: 33 DAYS PRIOR TO ADMISSION
  2. KEYTRUDA [Suspect]
     Active Substance: PEMBROLIZUMAB
     Dosage: 16 DAYS PRIOR TO ADMISSION

REACTIONS (2)
  - Myasthenia gravis crisis [Fatal]
  - Product use in unapproved indication [Unknown]
